FAERS Safety Report 15904559 (Version 2)
Quarter: 2019Q1

REPORT INFORMATION
  Report Type: Report from Study
  Country: US (occurrence: US)
  Receive Date: 20190204
  Receipt Date: 20190301
  Transmission Date: 20190417
  Serious: Yes (Other)
  Sender: FDA-Public Use
  Company Number: US-PFIZER INC-2018342359

PATIENT
  Age: 85 Year
  Sex: Female

DRUGS (3)
  1. SUTENT [Suspect]
     Active Substance: SUNITINIB MALATE
     Indication: GASTROINTESTINAL STROMAL TUMOUR
     Dosage: 37.5 MG, CYCLIC (DAILY, 21 DAYS OFF X 7 DAYS)
     Route: 048
     Dates: start: 20180803, end: 20190121
  2. SUTENT [Suspect]
     Active Substance: SUNITINIB MALATE
     Indication: CONNECTIVE TISSUE NEOPLASM
  3. SUTENT [Suspect]
     Active Substance: SUNITINIB MALATE
     Indication: SOFT TISSUE NEOPLASM

REACTIONS (14)
  - Skin disorder [Unknown]
  - White blood cell count decreased [Not Recovered/Not Resolved]
  - Skin exfoliation [Unknown]
  - Fall [Unknown]
  - Platelet count decreased [Unknown]
  - Headache [Unknown]
  - Urine output decreased [Unknown]
  - Melanocytic naevus [Unknown]
  - Pruritus [Recovering/Resolving]
  - Fatigue [Not Recovered/Not Resolved]
  - Asthenia [Not Recovered/Not Resolved]
  - Oral pain [Unknown]
  - Weight decreased [Unknown]
  - Gingival recession [Unknown]

NARRATIVE: CASE EVENT DATE: 2018
